FAERS Safety Report 17641340 (Version 1)
Quarter: 2020Q2

REPORT INFORMATION
  Report Type: Spontaneous
  Country: US (occurrence: US)
  Receive Date: 20200407
  Receipt Date: 20200407
  Transmission Date: 20200713
  Serious: Yes (Other)
  Sender: FDA-Public Use
  Company Number: US-NAPPMUNDI-USA-2020-0151007

PATIENT
  Sex: Male

DRUGS (2)
  1. OXYCONTIN [Suspect]
     Active Substance: OXYCODONE HYDROCHLORIDE
     Dosage: (8X80 MG) 640 MG, DAILY
     Route: 048
  2. OXYCONTIN [Suspect]
     Active Substance: OXYCODONE HYDROCHLORIDE
     Indication: BACK PAIN
     Dosage: (18X80 MG)1440 MG, DAILY
     Route: 048
     Dates: start: 2000

REACTIONS (5)
  - Pain [Unknown]
  - Quality of life decreased [Unknown]
  - Drug dependence [Unknown]
  - Disability [Unknown]
  - Drug withdrawal syndrome [Unknown]
